FAERS Safety Report 13660776 (Version 12)
Quarter: 2018Q2

REPORT INFORMATION
  Report Type: Report from Study
  Country: CO (occurrence: CO)
  Receive Date: 20170616
  Receipt Date: 20180628
  Transmission Date: 20180711
  Serious: Yes (Other)
  Sender: FDA-Public Use
  Company Number: CO-SA-2017SA102497

PATIENT
  Age: 33 Year
  Sex: Female

DRUGS (1)
  1. ALEMTUZUMAB [Suspect]
     Active Substance: ALEMTUZUMAB
     Indication: MULTIPLE SCLEROSIS
     Dosage: 12 MG,QD
     Route: 041
     Dates: start: 20170508, end: 20170512

REACTIONS (19)
  - Monocyte percentage increased [Recovered/Resolved]
  - White blood cell count decreased [Not Recovered/Not Resolved]
  - Oropharyngeal pain [Unknown]
  - Red blood cells urine [Unknown]
  - Leukopenia [Recovered/Resolved]
  - Photopsia [Recovered/Resolved]
  - Headache [Unknown]
  - Erythropenia [Recovered/Resolved]
  - Red blood cell sedimentation rate increased [Recovered/Resolved]
  - Asthenia [Unknown]
  - Neutrophil percentage decreased [Recovered/Resolved]
  - Aphthous ulcer [Unknown]
  - Eosinophil percentage increased [Recovered/Resolved]
  - Haemoglobin decreased [Recovered/Resolved]
  - Neutrophil count decreased [Recovered/Resolved]
  - Neutrophilia [Recovered/Resolved]
  - Dizziness [Unknown]
  - Haematocrit decreased [Recovered/Resolved]
  - Red blood cell count decreased [Recovered/Resolved]

NARRATIVE: CASE EVENT DATE: 20170605
